FAERS Safety Report 22020340 (Version 2)
Quarter: 2023Q1

REPORT INFORMATION
  Report Type: Report from Study
  Country: PH (occurrence: PH)
  Receive Date: 20230222
  Receipt Date: 20230224
  Transmission Date: 20230418
  Serious: Yes (Death, Other)
  Sender: FDA-Public Use
  Company Number: PH-JNJFOC-20230241481

PATIENT
  Sex: Male

DRUGS (1)
  1. ZYTIGA [Suspect]
     Active Substance: ABIRATERONE ACETATE
     Indication: Prostate cancer metastatic
     Dosage: TAKE 2 HOURS AFTER MEALS ON AN EMPTY STOMACH
     Route: 048

REACTIONS (3)
  - Death [Fatal]
  - Drug resistance [Unknown]
  - Prostatic specific antigen increased [Unknown]
